FAERS Safety Report 4823365-5 (Version None)
Quarter: 2005Q4

REPORT INFORMATION
  Report Type: 
  Country: None (occurrence: None)
  Receive Date: 20051108
  Receipt Date: 20051108
  Transmission Date: 20060501
  Serious: Yes (Hospitalization, Other)
  Sender: FDA-Public Use
  Company Number: None

PATIENT
  Age: 25 Year
  Sex: Male
  Weight: 73.9363 kg

DRUGS (2)
  1. CLOZAPINE [Suspect]
     Indication: SCHIZOPHRENIA
     Dosage: 200MG TOTAL DAILY DOSE    PO
     Route: 048
     Dates: start: 20050810, end: 20050824
  2. CLOZAPINE [Suspect]
     Dosage: 25MG TOTAL DAILY DOSE     PO
     Route: 048

REACTIONS (5)
  - HEART RATE INCREASED [None]
  - MALAISE [None]
  - NEUROLEPTIC MALIGNANT SYNDROME [None]
  - PYREXIA [None]
  - VOMITING [None]
